FAERS Safety Report 20875983 (Version 1)
Quarter: 2022Q2

REPORT INFORMATION
  Report Type: Spontaneous
  Country: US (occurrence: US)
  Receive Date: 20220526
  Receipt Date: 20220526
  Transmission Date: 20220721
  Serious: Yes (Other)
  Sender: FDA-Public Use
  Company Number: US-SA-SAC20220523001963

PATIENT
  Age: 67 Year
  Sex: Female

DRUGS (1)
  1. ZANTAC [Suspect]
     Active Substance: RANITIDINE HYDROCHLORIDE
     Indication: Dyspepsia
     Dosage: UNK, QD (UNKNOWN AT THIS TIME)
     Dates: start: 199901, end: 201401

REACTIONS (1)
  - Gastric cancer stage II [Unknown]

NARRATIVE: CASE EVENT DATE: 20120101
